FAERS Safety Report 9632150 (Version 3)
Quarter: 2015Q2

REPORT INFORMATION
  Report Type: Report from Study
  Country: DE (occurrence: DE)
  Receive Date: 20131018
  Receipt Date: 20150504
  Transmission Date: 20150821
  Serious: Yes (Other)
  Sender: FDA-Public Use
  Company Number: DE-TEVA-438449USA

PATIENT
  Age: 62 Year
  Sex: Male

DRUGS (3)
  1. RITUXIMAB [Concomitant]
     Active Substance: RITUXIMAB
     Dates: start: 20130805
  2. BENDAMUSTINE [Suspect]
     Active Substance: BENDAMUSTINE
     Indication: B-CELL LYMPHOMA
     Dosage: FREQUENCY: EVERY 28 DAYS
     Route: 065
     Dates: start: 20130708
  3. BENDAMUSTINE [Suspect]
     Active Substance: BENDAMUSTINE
     Dosage: FREQUENCY: EVERY 28 DAYS
     Route: 065
     Dates: start: 20130805

REACTIONS (5)
  - Fatigue [Recovered/Resolved]
  - Haemolytic anaemia [Unknown]
  - Neutropenia [Unknown]
  - Decreased appetite [Recovered/Resolved]
  - Bone pain [Unknown]

NARRATIVE: CASE EVENT DATE: 20130708
